FAERS Safety Report 17620499 (Version 1)
Quarter: 2020Q2

REPORT INFORMATION
  Report Type: Spontaneous
  Country: None (occurrence: IR)
  Receive Date: 20200403
  Receipt Date: 20200403
  Transmission Date: 20200713
  Serious: Yes (Hospitalization, Other)
  Sender: FDA-Public Use
  Company Number: IR-ORION CORPORATION ORION PHARMA-20_00008830

PATIENT
  Age: 68 Year
  Sex: Female

DRUGS (6)
  1. LEVOCARNITINE. [Concomitant]
     Active Substance: LEVOCARNITINE
     Route: 065
  2. LOSARTAN. [Concomitant]
     Active Substance: LOSARTAN
     Route: 065
  3. CARVEDILOL. [Concomitant]
     Active Substance: CARVEDILOL
     Route: 065
  4. METHOTREXATE. [Suspect]
     Active Substance: METHOTREXATE
     Indication: PRODUCT USED FOR UNKNOWN INDICATION
     Route: 065
  5. ACETYLSALICYLIC ACID [Interacting]
     Active Substance: ASPIRIN
     Indication: PRODUCT USED FOR UNKNOWN INDICATION
     Route: 065
  6. TRIAMTERENE. [Concomitant]
     Active Substance: TRIAMTERENE
     Route: 065

REACTIONS (13)
  - Drug interaction [Recovering/Resolving]
  - Accidental poisoning [Recovering/Resolving]
  - Muscular weakness [Recovering/Resolving]
  - Toxicity to various agents [Recovering/Resolving]
  - Product dispensing error [Recovering/Resolving]
  - Mouth ulceration [Recovering/Resolving]
  - White blood cell count decreased [Recovering/Resolving]
  - Movement disorder [Recovering/Resolving]
  - Paraesthesia [Recovering/Resolving]
  - Platelet count decreased [Recovering/Resolving]
  - Ulcer haemorrhage [Recovering/Resolving]
  - Wrong product administered [Recovering/Resolving]
  - Inappropriate schedule of product administration [Recovering/Resolving]
